FAERS Safety Report 12998530 (Version 3)
Quarter: 2016Q4

REPORT INFORMATION
  Report Type: Report from Study
  Country: DE (occurrence: DE)
  Receive Date: 20161205
  Receipt Date: 20161214
  Transmission Date: 20170207
  Serious: Yes (Hospitalization)
  Sender: FDA-Public Use
  Company Number: DE-ROCHE-1863170

PATIENT
  Age: 55 Year
  Sex: Female

DRUGS (17)
  1. METAMIZOL [Concomitant]
     Active Substance: METAMIZOLE SODIUM
     Route: 065
     Dates: end: 20160324
  2. COBIMETINIB [Suspect]
     Active Substance: COBIMETINIB
     Indication: METASTATIC MALIGNANT MELANOMA
     Dosage: RESTARTED ON 09/DEC/2016
     Route: 048
     Dates: start: 20160324, end: 20161201
  3. CETRIZINE [Concomitant]
     Active Substance: CETIRIZINE HYDROCHLORIDE
     Route: 065
     Dates: start: 20160616
  4. PREDNISOLON [Concomitant]
     Active Substance: PREDNISOLONE
     Route: 065
     Dates: end: 20160324
  5. ENTOCORT [Concomitant]
     Active Substance: BUDESONIDE
     Route: 065
     Dates: end: 20160501
  6. TILIDIN [Concomitant]
     Active Substance: NALOXONE HYDROCHLORIDE\TILIDINE HYDROCHLORIDE
     Route: 065
     Dates: end: 20160324
  7. LOPERAMID [Concomitant]
     Active Substance: LOPERAMIDE
     Route: 065
     Dates: start: 20160421
  8. FOSFOMYCIN [Concomitant]
     Active Substance: FOSFOMYCIN
  9. SALOFALK [Concomitant]
     Active Substance: MESALAMINE
     Route: 065
     Dates: end: 20160501
  10. DEKRISTOL [Concomitant]
     Active Substance: CHOLECALCIFEROL
     Dosage: 20000 IE
     Route: 065
     Dates: start: 20160509
  11. PIPERACILLIN/TAZOBACTAM [Concomitant]
     Active Substance: PIPERACILLIN SODIUM\TAZOBACTAM SODIUM
     Route: 065
     Dates: start: 20160517, end: 20160523
  12. PANTOPRAZOL [Concomitant]
     Active Substance: PANTOPRAZOLE SODIUM
     Route: 065
     Dates: end: 20160602
  13. KALIUM RETARD [Concomitant]
     Route: 065
     Dates: start: 20160517, end: 20160524
  14. CLEXANE [Concomitant]
     Active Substance: ENOXAPARIN SODIUM
     Route: 065
     Dates: start: 20160517, end: 20160524
  15. CLEXANE [Concomitant]
     Active Substance: ENOXAPARIN SODIUM
     Route: 065
     Dates: end: 20160324
  16. VEMURAFENIB [Suspect]
     Active Substance: VEMURAFENIB
     Indication: METASTATIC MALIGNANT MELANOMA
     Dosage: RESTARTED ON 09/DEC/2016
     Route: 048
     Dates: start: 20160323, end: 20161130
  17. HYDROGALEN [Concomitant]
     Route: 065
     Dates: start: 20160329, end: 20160401

REACTIONS (2)
  - Pyelonephritis [Recovered/Resolved]
  - Sepsis [Not Recovered/Not Resolved]

NARRATIVE: CASE EVENT DATE: 20161127
